FAERS Safety Report 19964422 (Version 1)
Quarter: 2021Q4

REPORT INFORMATION
  Report Type: Spontaneous
  Country: US (occurrence: US)
  Receive Date: 20211014
  Receipt Date: 20211014
  Transmission Date: 20220303
  Serious: Yes (Death)
  Sender: FDA-Public Use
  Company Number: None

PATIENT
  Age: 66 Year
  Sex: Female

DRUGS (21)
  1. EVENITY [Suspect]
     Active Substance: ROMOSOZUMAB-AQQG
     Indication: Senile osteoporosis
     Route: 058
     Dates: start: 20210420, end: 20210918
  2. ALBUTEROL SULFATE [Concomitant]
     Active Substance: ALBUTEROL SULFATE
  3. ALENDRONATE [Concomitant]
     Active Substance: ALENDRONATE SODIUM
  4. AZELASTINE. [Concomitant]
     Active Substance: AZELASTINE HYDROCHLORIDE
  5. BREO ELLIPTA [Concomitant]
     Active Substance: FLUTICASONE FUROATE\VILANTEROL TRIFENATATE
  6. CALCIUM [Concomitant]
     Active Substance: CALCIUM
  7. CITALOPRAM [Concomitant]
     Active Substance: CITALOPRAM HYDROBROMIDE
  8. DUPIXENT [Concomitant]
     Active Substance: DUPILUMAB
  9. COENZYME Q10 [Concomitant]
     Active Substance: DIETARY SUPPLEMENT\UBIDECARENONE
  10. ELIDEL [Concomitant]
     Active Substance: PIMECROLIMUS
  11. EUFLEXXA [Concomitant]
     Active Substance: HYALURONATE SODIUM
  12. FLUOCINONIDE OIN [Concomitant]
  13. FLUOROURACIL CRE [Concomitant]
  14. FLUTICASONE SPR [Concomitant]
  15. HYDROCHLOROTHIAZIDE [Concomitant]
     Active Substance: HYDROCHLOROTHIAZIDE
  16. MELOXICAM [Concomitant]
     Active Substance: MELOXICAM
  17. OSTEO BI-FLEX DBL ST [Concomitant]
  18. OZEMPIC [Concomitant]
     Active Substance: SEMAGLUTIDE
  19. PIMECROLIMUS CRE [Concomitant]
  20. TRAMADOL HCL [Concomitant]
     Active Substance: TRAMADOL HYDROCHLORIDE
  21. VITAMIN D [Concomitant]
     Active Substance: VITAMIN D NOS

REACTIONS (1)
  - Death [None]

NARRATIVE: CASE EVENT DATE: 20210918
